FAERS Safety Report 26208523 (Version 1)
Quarter: 2025Q4

REPORT INFORMATION
  Report Type: Spontaneous
  Country: US (occurrence: US)
  Receive Date: 20251229
  Receipt Date: 20251229
  Transmission Date: 20260118
  Serious: No
  Sender: GALPHARM INTERNATIONAL
  Company Number: US-PERRIGO-25US000829

PATIENT
  Age: 21 Year
  Sex: Female
  Weight: 77.098 kg

DRUGS (4)
  1. TIOCONAZOLE [Suspect]
     Active Substance: TIOCONAZOLE
     Indication: Vulvovaginal mycotic infection
     Dosage: 300 MG, SINGLE
     Route: 067
     Dates: start: 20250112, end: 20250112
  2. TIOCONAZOLE [Suspect]
     Active Substance: TIOCONAZOLE
     Indication: Pain
  3. ZOLOFT [Concomitant]
     Active Substance: SERTRALINE HYDROCHLORIDE
     Indication: Anxiety
     Dosage: UNK
     Route: 065
  4. ZOLOFT [Concomitant]
     Active Substance: SERTRALINE HYDROCHLORIDE
     Indication: Depression

REACTIONS (4)
  - Condition aggravated [Recovering/Resolving]
  - Vulvovaginal swelling [Recovering/Resolving]
  - Vulvovaginal burning sensation [Recovering/Resolving]
  - Vulvovaginal pruritus [Recovering/Resolving]

NARRATIVE: CASE EVENT DATE: 20250112
